FAERS Safety Report 18996039 (Version 1)
Quarter: 2021Q1

REPORT INFORMATION
  Report Type: Spontaneous
  Country: US (occurrence: US)
  Receive Date: 20210310
  Receipt Date: 20210310
  Transmission Date: 20210420
  Serious: No
  Sender: FDA-Public Use
  Company Number: None

PATIENT
  Age: 65 Year
  Sex: Male
  Weight: 90.26 kg

DRUGS (15)
  1. ABILIFY [Suspect]
     Active Substance: ARIPIPRAZOLE
     Indication: OBSESSIVE-COMPULSIVE DISORDER
     Dosage: 1 PER DAY BY MOUTH?3?4 YEARS
     Route: 048
     Dates: end: 20210101
  2. WELLBUTRIN [Concomitant]
     Active Substance: BUPROPION HYDROCHLORIDE
  3. DEXEDRINE [Concomitant]
     Active Substance: DEXTROAMPHETAMINE SULFATE
  4. AMLODIPINE [Concomitant]
     Active Substance: AMLODIPINE BESYLATE
  5. METFORMIN [Concomitant]
     Active Substance: METFORMIN HYDROCHLORIDE
  6. ABILIFY [Suspect]
     Active Substance: ARIPIPRAZOLE
     Indication: ATTENTION DEFICIT HYPERACTIVITY DISORDER
     Dosage: 1 PER DAY BY MOUTH?3?4 YEARS
     Route: 048
     Dates: end: 20210101
  7. VITAMIN B12 [Concomitant]
     Active Substance: CYANOCOBALAMIN
  8. CALCIUM [Concomitant]
     Active Substance: CALCIUM
  9. MULTI?VITAMIN [Concomitant]
     Active Substance: .ALPHA.-TOCOPHEROL ACETATE, DL-\ASCORBIC ACID\CYANOCOBALAMIN\FLUORIDE ION\FOLIC ACID\NIACIN\PYRIDOXINE\RIBOFLAVIN\THIAMINE\VITAMIN A\VITAMIN D
  10. CPAP [Concomitant]
     Active Substance: DEVICE
  11. ATORVASTATIN [Concomitant]
     Active Substance: ATORVASTATIN
  12. ABILIFY [Suspect]
     Active Substance: ARIPIPRAZOLE
     Indication: MAJOR DEPRESSION
     Dosage: 1 PER DAY BY MOUTH?3?4 YEARS
     Route: 048
     Dates: end: 20210101
  13. PAXIL [Concomitant]
     Active Substance: PAROXETINE HYDROCHLORIDE
  14. CLONAZEPAM. [Concomitant]
     Active Substance: CLONAZEPAM
  15. LISINOPRIL/HCTZ [Concomitant]
     Active Substance: HYDROCHLOROTHIAZIDE\LISINOPRIL

REACTIONS (2)
  - Libido increased [None]
  - Abnormal behaviour [None]

NARRATIVE: CASE EVENT DATE: 20200623
